FAERS Safety Report 6840168-0 (Version None)
Quarter: 2010Q3

REPORT INFORMATION
  Report Type: 
  Country: None (occurrence: None)
  Receive Date: 20100714
  Receipt Date: 20100706
  Transmission Date: 20110219
  Serious: Yes (Hospitalization, Other)
  Sender: FDA-Public Use
  Company Number: GB-BAYER-201020120GPV

PATIENT
  Age: 36 Year
  Sex: Female
  Weight: 54 kg

DRUGS (6)
  1. SORAFENIB [Suspect]
     Indication: PRODUCT USED FOR UNKNOWN INDICATION
     Dates: start: 20091211, end: 20100312
  2. SORAFENIB [Suspect]
     Dates: start: 20100402
  3. SORAFENIB [Suspect]
     Dates: start: 20100408, end: 20100606
  4. SORAFENIB [Suspect]
     Dates: start: 20100628
  5. CIPROFLOXACIN [Concomitant]
     Indication: PRODUCT USED FOR UNKNOWN INDICATION
     Route: 048
     Dates: start: 20100128
  6. EVOREL [Concomitant]
     Indication: PRODUCT USED FOR UNKNOWN INDICATION
     Route: 062
     Dates: start: 20080801

REACTIONS (3)
  - BILE DUCT STENT INSERTION [None]
  - DEVICE OCCLUSION [None]
  - HEPATIC FUNCTION ABNORMAL [None]
